FAERS Safety Report 14797006 (Version 2)
Quarter: 2018Q3

REPORT INFORMATION
  Report Type: Spontaneous
  Country: US (occurrence: US)
  Receive Date: 20180423
  Receipt Date: 20180704
  Transmission Date: 20181010
  Serious: Yes (Other)
  Sender: FDA-Public Use
  Company Number: US-SA-2017SA104731

PATIENT
  Age: 48 Year
  Sex: Female

DRUGS (2)
  1. LOVENOX [Suspect]
     Active Substance: ENOXAPARIN SODIUM
     Dosage: 40 MG,BID
     Route: 065
  2. LOVENOX [Suspect]
     Active Substance: ENOXAPARIN SODIUM
     Indication: PROPHYLAXIS
     Dosage: 60 MG,BID
     Route: 065
     Dates: start: 201608

REACTIONS (5)
  - Memory impairment [Unknown]
  - Pulmonary embolism [Recovered/Resolved]
  - Tendonitis [Unknown]
  - Musculoskeletal chest pain [Unknown]
  - Swelling [Unknown]
